FAERS Safety Report 7378145-6 (Version None)
Quarter: 2011Q1

REPORT INFORMATION
  Report Type: 
  Country: None (occurrence: None)
  Receive Date: 20110317
  Receipt Date: 20110304
  Transmission Date: 20110831
  Serious: Yes (Disabling, Other)
  Sender: FDA-Public Use
  Company Number: 20110180

PATIENT
  Age: 47 Year
  Sex: Female

DRUGS (3)
  1. DEXAMETHASONE SODIUM PHOSPHATE [Suspect]
     Indication: INFLAMMATION
     Dosage: INTRA-ARTICULAR
     Route: 014
     Dates: start: 20110107
  2. DEXAMETHASONE SODIUM PHOSPHATE [Suspect]
     Indication: ARTHRALGIA
     Dosage: INTRA-ARTICULAR
     Route: 014
     Dates: start: 20110107
  3. SYNTHROID [Suspect]
     Dosage: 112 MCG, ORAL
     Route: 048

REACTIONS (6)
  - GAIT DISTURBANCE [None]
  - SENSATION OF HEAVINESS [None]
  - DYSPNOEA [None]
  - PAIN IN EXTREMITY [None]
  - THERAPEUTIC PRODUCT INEFFECTIVE [None]
  - CHEST PAIN [None]
